FAERS Safety Report 26159905 (Version 1)
Quarter: 2025Q4

REPORT INFORMATION
  Report Type: Spontaneous
  Country: US (occurrence: US)
  Receive Date: 20251216
  Receipt Date: 20251216
  Transmission Date: 20260118
  Serious: No
  Sender: AMGEN
  Company Number: US-AMGEN-USASP2025243058

PATIENT
  Age: 61 Year

DRUGS (1)
  1. TAVNEOS [Suspect]
     Active Substance: AVACOPAN
     Indication: Product used for unknown indication
     Dosage: UNK (90 CAPSULES FOR 15 DAY SUPPLY)
     Route: 065

REACTIONS (2)
  - Intercepted product storage error [Unknown]
  - Emotional distress [Unknown]

NARRATIVE: CASE EVENT DATE: 20251201
